FAERS Safety Report 4975703-0 (Version None)
Quarter: 2006Q2

REPORT INFORMATION
  Report Type: 
  Country: None (occurrence: None)
  Receive Date: 20060418
  Receipt Date: 20060323
  Transmission Date: 20061013
  Serious: Yes (Other)
  Sender: FDA-Public Use
  Company Number: CA-NOVOPROD-251933

PATIENT
  Age: 38 Year
  Sex: Male
  Weight: 93 kg

DRUGS (9)
  1. LEVEMIR [Suspect]
     Indication: DIABETES MELLITUS INSULIN-DEPENDENT
     Dosage: 30 IU, QD
     Dates: start: 20051208
  2. NOVORAPID [Concomitant]
     Indication: DIABETES MELLITUS INSULIN-DEPENDENT
     Dosage: UNK, TID
     Route: 058
     Dates: start: 20050201
  3. ASPIRIN [Concomitant]
  4. PANTOPRAZOLE SODIUM [Concomitant]
     Dosage: 40 MG, QD
  5. ROSUVASTATIN [Concomitant]
     Dosage: 20 MG, UNK
     Route: 048
     Dates: start: 20041012
  6. METOPROLOL TARTRATE [Concomitant]
     Dosage: 25 MG, BID
     Route: 048
     Dates: start: 20041218
  7. LISINOPRIL [Concomitant]
     Dosage: 10 MG, UNK
     Route: 048
     Dates: start: 19991118
  8. ROSIGLITAZONE [Concomitant]
     Dosage: 4 MG, UNK
     Route: 048
     Dates: start: 20021028
  9. PENTOXIFYLLINE [Concomitant]
     Dosage: 400 MG, TID
     Route: 048
     Dates: start: 20050201

REACTIONS (2)
  - CARDIAC FAILURE CONGESTIVE [None]
  - OEDEMA PERIPHERAL [None]
